FAERS Safety Report 11584881 (Version 1)
Quarter: 2015Q4

REPORT INFORMATION
  Report Type: Spontaneous
  Country: ZA (occurrence: ZA)
  Receive Date: 20151001
  Receipt Date: 20151001
  Transmission Date: 20160304
  Serious: Yes (Other)
  Sender: FDA-Public Use
  Company Number: ZA-SA-2015SA148043

PATIENT
  Age: 85 Year
  Sex: Male

DRUGS (2)
  1. LANTUS SOLOSTAR [Suspect]
     Active Substance: INSULIN GLARGINE
     Route: 065
     Dates: start: 20150522
  2. SOLOSTAR [Concomitant]
     Active Substance: DEVICE
     Dates: start: 20150522

REACTIONS (1)
  - Renal impairment [Unknown]
